FAERS Safety Report 10880051 (Version 2)
Quarter: 2015Q1

REPORT INFORMATION
  Report Type: Report from Study
  Country: CA (occurrence: CA)
  Receive Date: 20150302
  Receipt Date: 20150318
  Transmission Date: 20150721
  Serious: Yes (Death, Hospitalization, Other)
  Sender: FDA-Public Use
  Company Number: CA-ABBVIE-15P-028-1354155-00

PATIENT
  Age: 53 Year
  Sex: Male
  Weight: 106.69 kg

DRUGS (1)
  1. LUPRON DEPOT [Suspect]
     Active Substance: LEUPROLIDE ACETATE
     Indication: PROSTATE CANCER
     Route: 030
     Dates: start: 20131230, end: 20140924

REACTIONS (14)
  - Blood creatinine increased [Unknown]
  - Haematuria [Unknown]
  - Pulmonary embolism [Fatal]
  - Peripheral swelling [Unknown]
  - Acute kidney injury [Recovered/Resolved]
  - Pain [Unknown]
  - Renal impairment [Unknown]
  - Intestinal obstruction [Unknown]
  - Retroperitoneal lymphadenopathy [Unknown]
  - Scrotal swelling [Unknown]
  - Intestinal mass [Unknown]
  - Rectal cancer [Unknown]
  - Deep vein thrombosis [Recovered/Resolved]
  - Confusional state [Unknown]

NARRATIVE: CASE EVENT DATE: 201501
